FAERS Safety Report 21282045 (Version 1)
Quarter: 2022Q3

REPORT INFORMATION
  Report Type: Spontaneous
  Country: US (occurrence: US)
  Receive Date: 20220901
  Receipt Date: 20220901
  Transmission Date: 20221026
  Serious: No
  Sender: FDA-Public Use
  Company Number: US-ABBVIE-22K-163-4497276-00

PATIENT
  Age: 48 Year
  Sex: Female

DRUGS (8)
  1. HUMIRA [Suspect]
     Active Substance: ADALIMUMAB
     Indication: Hidradenitis
     Route: 058
  2. HUMIRA [Suspect]
     Active Substance: ADALIMUMAB
     Indication: Rheumatoid arthritis
  3. DUPIXENT [Suspect]
     Active Substance: DUPILUMAB
     Indication: Hidradenitis
     Dosage: STRENGTH: 300MG/2ML
     Route: 058
     Dates: start: 20220106
  4. DUPIXENT [Suspect]
     Active Substance: DUPILUMAB
     Indication: Rheumatoid arthritis
  5. DUPIXENT [Suspect]
     Active Substance: DUPILUMAB
     Indication: Dermatitis atopic
  6. DUPIXENT [Suspect]
     Active Substance: DUPILUMAB
     Indication: Polymenorrhoea
  7. DUPIXENT [Suspect]
     Active Substance: DUPILUMAB
     Indication: Intrauterine contraception
  8. DUPIXENT [Suspect]
     Active Substance: DUPILUMAB
     Indication: Heavy menstrual bleeding

REACTIONS (2)
  - Condition aggravated [Not Recovered/Not Resolved]
  - Product use in unapproved indication [Unknown]

NARRATIVE: CASE EVENT DATE: 20220106
